FAERS Safety Report 6614490-7 (Version None)
Quarter: 2010Q1

REPORT INFORMATION
  Report Type: 
  Country: None (occurrence: None)
  Receive Date: 20100304
  Receipt Date: 20100304
  Transmission Date: 20100710
  Serious: Yes (Death, Hospitalization)
  Sender: FDA-Public Use
  Company Number: None

PATIENT
  Age: 62 Year
  Sex: Female
  Weight: 92.5 kg

DRUGS (1)
  1. BEVACIZUMAB 25MG/ML IV SOLUTION GENENECH [Suspect]
     Indication: BREAST CANCER METASTATIC
     Dosage: 1395MG EVERY 3 WEEKS IV
     Route: 042
     Dates: start: 20091204, end: 20100111

REACTIONS (8)
  - ASTHENIA [None]
  - CARDIAC ARREST [None]
  - DEPRESSED LEVEL OF CONSCIOUSNESS [None]
  - DIARRHOEA [None]
  - FATIGUE [None]
  - PNEUMATOSIS [None]
  - REFUSAL OF TREATMENT BY PATIENT [None]
  - VOMITING [None]
